FAERS Safety Report 12467285 (Version 1)
Quarter: 2016Q2

REPORT INFORMATION
  Report Type: Spontaneous
  Country: US (occurrence: None)
  Receive Date: 20160614
  Receipt Date: 20160614
  Transmission Date: 20160815
  Serious: Yes (Disabling)
  Sender: FDA-Public Use
  Company Number: None

PATIENT
  Age: 22 Year
  Sex: Male
  Weight: 59.88 kg

DRUGS (3)
  1. SULFAMETH [Concomitant]
  2. COPRA [Concomitant]
  3. CIPROFLOXACIN, 500MG BAYER [Suspect]
     Active Substance: CIPROFLOXACIN
     Indication: PROSTATITIS
     Route: 048
     Dates: start: 20160608, end: 20160609

REACTIONS (7)
  - Heart rate decreased [None]
  - Paraesthesia [None]
  - Abasia [None]
  - Hypoaesthesia [None]
  - Weight bearing difficulty [None]
  - Gait disturbance [None]
  - Heart rate increased [None]

NARRATIVE: CASE EVENT DATE: 20160609
